FAERS Safety Report 5749649-4 (Version None)
Quarter: 2008Q2

REPORT INFORMATION
  Report Type: 
  Country: None (occurrence: None)
  Receive Date: 20080521
  Receipt Date: 20080521
  Transmission Date: 20081010
  Serious: Yes (Hospitalization)
  Sender: FDA-Public Use
  Company Number: None

PATIENT
  Age: 27 Year
  Sex: Female

DRUGS (1)
  1. DOXORUBICIN HCL [Suspect]
     Indication: RASH GENERALISED
     Dosage: 100 MG/M2 Q 21 DAYS PR
     Dates: start: 20080127

REACTIONS (1)
  - RASH MACULO-PAPULAR [None]
